FAERS Safety Report 14735558 (Version 1)
Quarter: 2018Q2

REPORT INFORMATION
  Report Type: Spontaneous
  Country: US (occurrence: US)
  Receive Date: 20180403
  Receipt Date: 20180403
  Transmission Date: 20180711
  Serious: Yes (Life-Threatening, Other)
  Sender: FDA-Public Use
  Company Number: None

PATIENT
  Age: 69 Year
  Sex: Female
  Weight: 68.85 kg

DRUGS (1)
  1. CELECOXIB. [Suspect]
     Active Substance: CELECOXIB
     Indication: PRODUCT USED FOR UNKNOWN INDICATION

REACTIONS (7)
  - Asthenia [None]
  - Product substitution issue [None]
  - Blood pressure increased [None]
  - Heart rate increased [None]
  - Influenza like illness [None]
  - Blood urine present [None]
  - Pyrexia [None]

NARRATIVE: CASE EVENT DATE: 20180310
